FAERS Safety Report 6717597-9 (Version None)
Quarter: 2010Q2

REPORT INFORMATION
  Report Type: 
  Country: None (occurrence: None)
  Receive Date: 20100510
  Receipt Date: 20100429
  Transmission Date: 20101027
  Serious: Yes (Other)
  Sender: FDA-Public Use
  Company Number: US-JNJFOC-20100501010

PATIENT
  Age: 56 Year
  Sex: Female

DRUGS (7)
  1. DOXIL [Suspect]
     Indication: OVARIAN CANCER
     Route: 042
  2. DOXIL [Suspect]
     Route: 042
  3. GEMCITABINE HCL [Concomitant]
     Indication: OVARIAN CANCER
     Route: 065
  4. TOPOTECAN [Concomitant]
     Indication: OVARIAN CANCER
     Route: 065
  5. CARBOPLATIN [Concomitant]
     Indication: OVARIAN CANCER
     Route: 065
  6. TAXOL [Concomitant]
     Indication: OVARIAN CANCER
     Route: 065
  7. TAMOXIFEN CITRATE [Concomitant]
     Indication: OVARIAN CANCER
     Route: 065

REACTIONS (2)
  - OVARIAN CANCER [None]
  - URETERIC OBSTRUCTION [None]
